FAERS Safety Report 13257292 (Version 1)
Quarter: 2017Q1

REPORT INFORMATION
  Report Type: Spontaneous
  Country: GB (occurrence: GB)
  Receive Date: 20170221
  Receipt Date: 20170221
  Transmission Date: 20170428
  Serious: Yes (Other)
  Sender: FDA-Public Use
  Company Number: GB-SYNTHON BV-NL01PV17_43105

PATIENT
  Age: 73 Year
  Sex: Male

DRUGS (5)
  1. OMEPRAZOLE. [Suspect]
     Active Substance: OMEPRAZOLE
     Dosage: 10 MG, DAILY
  2. DIFFUNDOX [Suspect]
     Active Substance: TAMSULOSIN HYDROCHLORIDE
     Dosage: UNK
     Dates: start: 20151005
  3. GLUCOSAMINE [Concomitant]
     Active Substance: GLUCOSAMINE
     Dosage: UNK
  4. DIFFUNDOX [Suspect]
     Active Substance: TAMSULOSIN HYDROCHLORIDE
     Indication: PAIN
     Dosage: UNK
     Dates: start: 20150909
  5. GINKO BILOBA [Concomitant]
     Active Substance: GINKGO
     Dosage: UNK

REACTIONS (5)
  - Macular detachment [Unknown]
  - Vision blurred [Unknown]
  - Macular hole [Unknown]
  - Eosinophilia [Unknown]
  - Macular degeneration [Unknown]

NARRATIVE: CASE EVENT DATE: 20151014
